FAERS Safety Report 18933692 (Version 1)
Quarter: 2021Q1

REPORT INFORMATION
  Report Type: Spontaneous
  Country: IT (occurrence: IT)
  Receive Date: 20210224
  Receipt Date: 20210224
  Transmission Date: 20210420
  Serious: Yes (Hospitalization)
  Sender: FDA-Public Use
  Company Number: IT-ABBVIE-21K-083-3781828-00

PATIENT
  Age: 76 Year
  Sex: Male

DRUGS (2)
  1. VENETOCLAX. [Suspect]
     Active Substance: VENETOCLAX
     Indication: ACUTE MYELOID LEUKAEMIA
     Route: 048
     Dates: start: 20210208, end: 20210209
  2. VIDAZA [Concomitant]
     Active Substance: AZACITIDINE
     Indication: ACUTE MYELOID LEUKAEMIA
     Dates: start: 20210201, end: 20210208

REACTIONS (2)
  - Acute pulmonary oedema [Recovered/Resolved with Sequelae]
  - Troponin increased [Recovered/Resolved with Sequelae]

NARRATIVE: CASE EVENT DATE: 20210210
